FAERS Safety Report 7838004-9 (Version None)
Quarter: 2011Q4

REPORT INFORMATION
  Report Type: 
  Country: None (occurrence: None)
  Receive Date: 20111024
  Receipt Date: 20111006
  Transmission Date: 20120403
  Serious: No
  Sender: FDA-Public Use
  Company Number: US-ABBOTT-11P-163-0862946-00

PATIENT
  Sex: Female
  Weight: 108.05 kg

DRUGS (4)
  1. IBUPROFEN [Concomitant]
     Indication: PELVIC PAIN
  2. LUPRON DEPOT [Suspect]
     Indication: UTERINE LEIOMYOMA
     Dates: start: 20110901
  3. BYSTOLIC [Concomitant]
     Indication: HYPERTENSION
  4. LISINOPRIL [Concomitant]
     Indication: HYPERTENSION

REACTIONS (6)
  - MENORRHAGIA [None]
  - DRUG INEFFECTIVE [None]
  - DEPRESSION [None]
  - VAGINAL HAEMORRHAGE [None]
  - DYSMENORRHOEA [None]
  - PELVIC PAIN [None]
